FAERS Safety Report 9470478 (Version 2)
Quarter: 2013Q3

REPORT INFORMATION
  Report Type: Spontaneous
  Country: US (occurrence: None)
  Receive Date: 20130820
  Receipt Date: 20130820
  Transmission Date: 20140515
  Serious: No
  Sender: FDA-Public Use
  Company Number: None

PATIENT
  Age: 3 Month
  Sex: Female
  Weight: 67.13 kg

DRUGS (1)
  1. METRONIDAZOLE [Suspect]
     Indication: VAGINAL INFECTION
     Route: 048

REACTIONS (8)
  - Dry mouth [None]
  - Abdominal pain upper [None]
  - Diarrhoea [None]
  - Headache [None]
  - Dizziness [None]
  - Chills [None]
  - Migraine [None]
  - Pyrexia [None]
